FAERS Safety Report 6473830-2 (Version None)
Quarter: 2009Q4

REPORT INFORMATION
  Report Type: 
  Country: None (occurrence: None)
  Receive Date: 20091204
  Receipt Date: 20091125
  Transmission Date: 20100525
  Serious: Yes (Other)
  Sender: FDA-Public Use
  Company Number: US-ROCHE-671583

PATIENT
  Age: 50 Year
  Sex: Female
  Weight: 49.9 kg

DRUGS (8)
  1. PEGASYS [Suspect]
     Indication: HEPATITIS C
     Route: 065
     Dates: start: 20090901, end: 20091125
  2. COPEGUS [Suspect]
     Indication: HEPATITIS C
     Dosage: DOSE:200 MG X 5
     Route: 048
     Dates: start: 20090901, end: 20091125
  3. NEURONTIN [Concomitant]
  4. TOPAMAX [Concomitant]
  5. PRILOSEC [Concomitant]
  6. SINGULAIR [Concomitant]
  7. PROPRANOLOL [Concomitant]
     Dosage: DRUG NAME:PROPANOLOL
  8. KADIAN [Concomitant]

REACTIONS (8)
  - ASTHENIA [None]
  - DIARRHOEA [None]
  - DIZZINESS [None]
  - FALL [None]
  - NAUSEA [None]
  - UPPER LIMB FRACTURE [None]
  - WEIGHT DECREASED [None]
  - WHITE BLOOD CELL COUNT DECREASED [None]
